FAERS Safety Report 9250515 (Version 1)
Quarter: 2013Q1

REPORT INFORMATION
  Report Type: Spontaneous
  Country: US (occurrence: None)
  Receive Date: 20130305
  Receipt Date: 20130305
  Transmission Date: 20140127
  Serious: Yes (Other)
  Sender: FDA-Public Use
  Company Number: 163-21880-12093130

PATIENT
  Age: 82 Year
  Sex: Female
  Weight: 88.45 kg

DRUGS (12)
  1. REVLIMID (LENALIDOMIDE) (CAPSULES) [Suspect]
     Indication: MYELODYSPLASTIC SYNDROME
     Dosage: 21 IN 28 D
     Route: 048
     Dates: start: 20120818
  2. AMBIEN [Concomitant]
  3. ASA (ACETYLSALICYLIC ACID) [Concomitant]
  4. BACTRIM [Concomitant]
  5. DECADRON [Concomitant]
  6. GABAPENTIN [Concomitant]
  7. GLIPIZIDE [Concomitant]
  8. LIPITOR (ATORVASTATIN) [Concomitant]
  9. MICARDIS (TELMISARTAN) [Concomitant]
  10. COMPAZINE [Concomitant]
  11. SYNTHROID (LEVOTHYROXINE SODIUM) [Concomitant]
  12. TYLENOL ARTHRITIS [Concomitant]

REACTIONS (2)
  - Nausea [None]
  - Vomiting [None]
